FAERS Safety Report 11381680 (Version 1)
Quarter: 2015Q3

REPORT INFORMATION
  Report Type: Spontaneous
  Country: US (occurrence: US)
  Receive Date: 20150814
  Receipt Date: 20150814
  Transmission Date: 20151125
  Serious: No
  Sender: FDA-Public Use
  Company Number: US-GALDERMA-US14003756

PATIENT
  Age: 16 Year
  Sex: Female

DRUGS (1)
  1. ADAPALENE GEL,0.3% [Suspect]
     Active Substance: ADAPALENE
     Indication: ACNE
     Route: 061
     Dates: start: 201407

REACTIONS (1)
  - Drug ineffective [Unknown]
